FAERS Safety Report 7585198-9 (Version None)
Quarter: 2011Q3

REPORT INFORMATION
  Report Type: 
  Country: None (occurrence: None)
  Receive Date: 20110701
  Receipt Date: 20110622
  Transmission Date: 20111222
  Serious: No
  Sender: FDA-Public Use
  Company Number: US-BIOGENIDEC-2010BI035543

PATIENT
  Sex: Female

DRUGS (3)
  1. LEXAPRO [Concomitant]
     Indication: ANXIETY
     Dates: start: 20100101
  2. LEXAPRO [Concomitant]
     Dates: start: 20100101
  3. TYSABRI [Suspect]
     Indication: MULTIPLE SCLEROSIS
     Route: 042
     Dates: start: 20100629

REACTIONS (6)
  - MUSCLE SPASTICITY [None]
  - BALANCE DISORDER [None]
  - SENSATION OF HEAVINESS [None]
  - FATIGUE [None]
  - MUSCULOSKELETAL STIFFNESS [None]
  - FALL [None]
